FAERS Safety Report 18508073 (Version 2)
Quarter: 2020Q4

REPORT INFORMATION
  Report Type: Report from Study
  Country: US (occurrence: US)
  Receive Date: 20201116
  Receipt Date: 20201221
  Transmission Date: 20210114
  Serious: Yes (Hospitalization)
  Sender: FDA-Public Use
  Company Number: US-PFIZER INC-2020443899

PATIENT
  Age: 2 Year
  Sex: Female
  Weight: 14 kg

DRUGS (12)
  1. IRINOTECAN HCL [Suspect]
     Active Substance: IRINOTECAN HYDROCHLORIDE
     Indication: HEPATOBLASTOMA
     Dosage: 30 MG, ONCE DAILY (DAYS 1-5 OF 21 DAY CYCLE)
     Route: 041
     Dates: start: 20191219
  2. ATROPINE. [Concomitant]
     Active Substance: ATROPINE
     Indication: CHEMOTHERAPY SIDE EFFECT PROPHYLAXIS
     Dosage: 0.14 MG, PRN
     Route: 042
     Dates: start: 20201102
  3. SYRPALTA [Concomitant]
     Dosage: 6 ML, PRN (DOSING SOLUTION)
     Route: 048
     Dates: start: 20201102
  4. HYDROCODONE/PARACETAMOL [Concomitant]
     Active Substance: ACETAMINOPHEN\HYDROCODONE BITARTRATE
     Indication: PROCEDURAL PAIN
     Dosage: 1 MG, ONCE
     Route: 048
     Dates: start: 20201029, end: 20201029
  5. PROPOFOL. [Concomitant]
     Active Substance: PROPOFOL
     Indication: INDUCTION OF ANAESTHESIA
     Dosage: 40 MG, ONCE
     Route: 042
     Dates: start: 20201029, end: 20201029
  6. PEGFILGRASTIM [Concomitant]
     Active Substance: PEGFILGRASTIM
     Indication: BLOOD COUNT ABNORMAL
     Dosage: 6 MG, ONCE
     Route: 058
     Dates: start: 20201107, end: 20201107
  7. FENTANYL. [Concomitant]
     Active Substance: FENTANYL
     Indication: PROCEDURAL PAIN
     Dosage: 40 UG, ONCE
     Route: 042
     Dates: start: 20201029, end: 20201029
  8. CEFIXIME. [Concomitant]
     Active Substance: CEFIXIME
     Indication: PROPHYLAXIS AGAINST DIARRHOEA
     Dosage: 108 MG, 1X/DAY
     Route: 048
     Dates: start: 20201031, end: 20201109
  9. PALBOCICLIB [Suspect]
     Active Substance: PALBOCICLIB
     Indication: HEPATOBLASTOMA
     Dosage: 45 MG, ONCE DAILY (DAYS 1-14 OF 21 DAY CYCLE)
     Route: 048
     Dates: start: 20191219
  10. TEMOZOLOMIDE. [Suspect]
     Active Substance: TEMOZOLOMIDE
     Indication: HEPATOBLASTOMA
     Dosage: 60 MG, ONCE DAILY (DAYS 1-5 OF 21 DAY CYCLE) (LYOPHILIZED)
     Route: 041
     Dates: start: 20191219
  11. ONDANSETRON [Concomitant]
     Active Substance: ONDANSETRON
     Indication: PROPHYLAXIS OF NAUSEA AND VOMITING
     Dosage: 6.4 MG, PRN
     Route: 042
     Dates: start: 20201029
  12. CEFAZOLIN [Concomitant]
     Active Substance: CEFAZOLIN
     Indication: ANTIBIOTIC PROPHYLAXIS
     Dosage: 350 MG, ONCE
     Route: 042
     Dates: start: 20201029, end: 20201029

REACTIONS (3)
  - Urinary tract infection [Recovered/Resolved]
  - Vomiting [Recovered/Resolved]
  - Dehydration [Recovered/Resolved]

NARRATIVE: CASE EVENT DATE: 20201107
